FAERS Safety Report 4950883-1 (Version None)
Quarter: 2006Q1

REPORT INFORMATION
  Report Type: 
  Country: None (occurrence: None)
  Receive Date: 20060316
  Receipt Date: 20060307
  Transmission Date: 20060701
  Serious: Yes (Hospitalization)
  Sender: FDA-Public Use
  Company Number: HQWYE226209MAR06

PATIENT
  Age: 2 Year
  Sex: Female

DRUGS (1)
  1. RAPAMUNE [Suspect]
     Indication: LIVER TRANSPLANT

REACTIONS (13)
  - CEREBRAL HAEMORRHAGE [None]
  - DISEASE RECURRENCE [None]
  - HAEMORRHAGE INTRACRANIAL [None]
  - HAEMORRHAGIC DISORDER [None]
  - HAEMORRHAGIC INFARCTION [None]
  - HEMIPLEGIA [None]
  - HYPERTENSION [None]
  - INFECTION [None]
  - INTRAVENTRICULAR HAEMORRHAGE [None]
  - LEUKOENCEPHALOPATHY [None]
  - PLATELET DISORDER [None]
  - SUBARACHNOID HAEMORRHAGE [None]
  - SUBDURAL HAEMORRHAGE [None]
